FAERS Safety Report 5010325-7 (Version None)
Quarter: 2006Q2

REPORT INFORMATION
  Report Type: 
  Country: None (occurrence: None)
  Receive Date: 20060404
  Receipt Date: 20051219
  Transmission Date: 20061013
  Serious: No
  Sender: FDA-Public Use
  Company Number: US200512003463

PATIENT
  Age: 68 Year
  Sex: 0

DRUGS (3)
  1. CYMBALTA [Suspect]
     Dosage: 30 MG, DAILY (1/D)
     Dates: start: 20051101, end: 20050101
  2. FORTEO [Suspect]
     Indication: BONE DENSITY DECREASED
     Dates: start: 20051210, end: 20051219
  3. FORTEO [Concomitant]

REACTIONS (8)
  - ASTHENIA [None]
  - BED REST [None]
  - DIZZINESS [None]
  - FATIGUE [None]
  - HEADACHE [None]
  - NAUSEA [None]
  - VISION BLURRED [None]
  - VISUAL DISTURBANCE [None]
